FAERS Safety Report 15895121 (Version 1)
Quarter: 2019Q1

REPORT INFORMATION
  Report Type: Report from Study
  Country: US (occurrence: US)
  Receive Date: 20190131
  Receipt Date: 20190131
  Transmission Date: 20190417
  Serious: Yes (Hospitalization, Other)
  Sender: FDA-Public Use
  Company Number: PHEH2019US003823

PATIENT
  Sex: Female

DRUGS (1)
  1. ENTRESTO [Suspect]
     Active Substance: SACUBITRIL\VALSARTAN
     Indication: PRODUCT USED FOR UNKNOWN INDICATION
     Dosage: 50MG (SACUBITRIL 24 MG AND VALSARTAN 26 MG), BID
     Route: 048
     Dates: start: 20180807

REACTIONS (4)
  - Bone cancer [Unknown]
  - Abdominal sepsis [Unknown]
  - Escherichia infection [Unknown]
  - Gallbladder rupture [Unknown]
